FAERS Safety Report 11997345 (Version 1)
Quarter: 2016Q1

REPORT INFORMATION
  Report Type: Spontaneous
  Country: US (occurrence: US)
  Receive Date: 20160203
  Receipt Date: 20160203
  Transmission Date: 20160526
  Serious: Yes (Hospitalization)
  Sender: FDA-Public Use
  Company Number: US-AMGEN-USASP2016010323

PATIENT
  Age: 79 Year
  Sex: Female

DRUGS (1)
  1. PROLIA [Suspect]
     Active Substance: DENOSUMAB
     Indication: PRODUCT USED FOR UNKNOWN INDICATION
     Dosage: UNK
     Route: 065

REACTIONS (9)
  - Pain in extremity [Unknown]
  - Hypotension [Unknown]
  - Headache [Unknown]
  - Cystitis [Unknown]
  - Renal disorder [Unknown]
  - Dysstasia [Unknown]
  - Urticaria [Unknown]
  - Musculoskeletal pain [Unknown]
  - Gait disturbance [Unknown]
